FAERS Safety Report 4378831-6 (Version None)
Quarter: 2004Q2

REPORT INFORMATION
  Report Type: 
  Country: None (occurrence: None)
  Receive Date: 20040610
  Receipt Date: 20040601
  Transmission Date: 20050107
  Serious: Yes (Death, Life-Threatening, Hospitalization, Disabling)
  Sender: FDA-Public Use
  Company Number: AT-JNJFOC-20040600020

PATIENT
  Age: 58 Year
  Sex: Male
  Weight: 64 kg

DRUGS (8)
  1. REMICADE (INFLIXIMAB, RECOMBINANT) LYOPHILIZED POWDER [Suspect]
     Indication: PSORIASIS
     Dosage: 100 MG, INTRAVENOUS
     Route: 042
     Dates: start: 20030613, end: 20030627
  2. OMEPRAZOLE [Concomitant]
  3. WARFARIN (WARFARIN) TABLETS [Concomitant]
  4. AMITRIPTYLINE HCL [Concomitant]
  5. GABAPENTIN [Concomitant]
  6. DEXIBUPROFEN (DEXIBUPROFEN) [Concomitant]
  7. PREDNISOLONE [Concomitant]
  8. TRAMADOL HCL [Concomitant]

REACTIONS (1)
  - MULTI-ORGAN FAILURE [None]
